FAERS Safety Report 18328892 (Version 1)
Quarter: 2020Q3

REPORT INFORMATION
  Report Type: Spontaneous
  Country: US (occurrence: US)
  Receive Date: 20200929
  Receipt Date: 20200929
  Transmission Date: 20201103
  Serious: Yes (Hospitalization)
  Sender: FDA-Public Use
  Company Number: None

PATIENT
  Age: 28 Year
  Sex: Female

DRUGS (25)
  1. CAPECITABINE. [Concomitant]
     Active Substance: CAPECITABINE
  2. CEPHALEXIN. [Concomitant]
     Active Substance: CEPHALEXIN
  3. HYDROCODONE BITARTRATE AND ACETAMINOPHEN [Concomitant]
     Active Substance: ACETAMINOPHEN\HYDROCODONE BITARTRATE
  4. MIRTAZAPINE. [Concomitant]
     Active Substance: MIRTAZAPINE
  5. OMEPRAZOLE. [Concomitant]
     Active Substance: OMEPRAZOLE
  6. PREDNISONE. [Concomitant]
     Active Substance: PREDNISONE
  7. SSD CREAM [Concomitant]
     Active Substance: SILVER SULFADIAZINE
  8. AMOX/K CLAVULATE [Concomitant]
  9. DIIPHEN/ATROP [Concomitant]
  10. ALPRAZOLAM. [Concomitant]
     Active Substance: ALPRAZOLAM
  11. CEFDINIR. [Concomitant]
     Active Substance: CEFDINIR
  12. CHOLESTRAM POW [Concomitant]
  13. DE [Concomitant]
  14. METHYLPHENID [Concomitant]
     Active Substance: METHYLPHENIDATE
  15. POTASSIUM CHLORIDE. [Concomitant]
     Active Substance: POTASSIUM CHLORIDE
  16. TAMOXIFEN [Concomitant]
     Active Substance: TAMOXIFEN
  17. DICYCLOMINE [Concomitant]
     Active Substance: DICYCLOMINE HYDROCHLORIDE
  18. BUTABITAL APAP [Concomitant]
  19. DEXAMETHASON [Concomitant]
     Active Substance: DEXAMETHASONE
  20. SMZ/TMP [Concomitant]
     Active Substance: SULFAMETHOXAZOLE\TRIMETHOPRIM
  21. LORAZEPAM. [Concomitant]
     Active Substance: LORAZEPAM
  22. METROPOLOL SUC [Concomitant]
  23. CAPECITABINE 500MG [Suspect]
     Active Substance: CAPECITABINE
     Indication: BREAST CANCER FEMALE
     Route: 048
     Dates: start: 20200721
  24. ONDANSETRON [Concomitant]
     Active Substance: ONDANSETRON
  25. XARELTO [Concomitant]
     Active Substance: RIVAROXABAN

REACTIONS (2)
  - Diarrhoea [None]
  - Adverse drug reaction [None]

NARRATIVE: CASE EVENT DATE: 20200928
